FAERS Safety Report 21604449 (Version 1)
Quarter: 2022Q4

REPORT INFORMATION
  Report Type: Report from Study
  Country: US (occurrence: US)
  Receive Date: 20221116
  Receipt Date: 20221116
  Transmission Date: 20230113
  Serious: Yes (Hospitalization, Other)
  Sender: FDA-Public Use
  Company Number: US-ABBVIE-4202026

PATIENT
  Age: 61 Year
  Sex: Male

DRUGS (1)
  1. HUMIRA [Suspect]
     Active Substance: ADALIMUMAB
     Indication: Psoriatic arthropathy
     Dosage: CITRATE FREE
     Route: 058

REACTIONS (6)
  - Cerebral thrombosis [Unknown]
  - Cerebrovascular disorder [Unknown]
  - Arteriovenous fistula [Unknown]
  - Magnetic resonance imaging head abnormal [Unknown]
  - Diplopia [Unknown]
  - Hypertension [Unknown]

NARRATIVE: CASE EVENT DATE: 20221107
